FAERS Safety Report 7296546-1 (Version None)
Quarter: 2011Q1

REPORT INFORMATION
  Report Type: 
  Country: None (occurrence: None)
  Receive Date: 20110216
  Receipt Date: 20110204
  Transmission Date: 20110831
  Serious: Yes (Hospitalization)
  Sender: FDA-Public Use
  Company Number: PHFR2010IE03970

PATIENT
  Sex: Female
  Weight: 97 kg

DRUGS (4)
  1. CLOZARIL [Suspect]
     Dosage: 50 MG, BID
     Route: 048
     Dates: start: 20100208
  2. PRIADEL [Concomitant]
     Dosage: 1200 MG, QD
  3. EFFEXOR XR [Suspect]
     Dosage: 37.5 MG, QD
  4. ABILIFY [Concomitant]
     Dosage: 12 MG, QD

REACTIONS (4)
  - AGITATION [None]
  - PARANOIA [None]
  - MANIA [None]
  - DIFFERENTIAL WHITE BLOOD CELL COUNT ABNORMAL [None]
